FAERS Safety Report 4805882-7 (Version None)
Quarter: 2005Q4

REPORT INFORMATION
  Report Type: 
  Country: None (occurrence: None)
  Receive Date: 20051021
  Receipt Date: 20050928
  Transmission Date: 20060501
  Serious: Yes (Hospitalization, Other)
  Sender: FDA-Public Use
  Company Number: US-BRISTOL-MYERS SQUIBB COMPANY-13142799

PATIENT
  Age: 74 Year
  Sex: Male
  Weight: 84 kg

DRUGS (7)
  1. CETUXIMAB [Suspect]
     Indication: NON-SMALL CELL LUNG CANCER
     Route: 042
     Dates: start: 20050505, end: 20050505
  2. PEMETREXED DISODIUM [Suspect]
     Indication: NON-SMALL CELL LUNG CANCER
     Route: 042
     Dates: start: 20050817, end: 20050817
  3. DILANTIN [Concomitant]
     Dates: start: 20040204
  4. FOLIC ACID [Concomitant]
     Dates: start: 20050426
  5. HYDROCORTISONE [Concomitant]
     Dates: start: 20050817
  6. FLORINEF [Concomitant]
  7. B12 [Concomitant]
     Dates: start: 20050701, end: 20050822

REACTIONS (2)
  - ANAEMIA [None]
  - HYPOTENSION [None]
